FAERS Safety Report 7027778-5 (Version None)
Quarter: 2010Q3

REPORT INFORMATION
  Report Type: 
  Country: None (occurrence: None)
  Receive Date: 20100818
  Receipt Date: 20100804
  Transmission Date: 20110219
  Serious: Yes (Death, Hospitalization, Other)
  Sender: FDA-Public Use
  Company Number: THYM-1001011

PATIENT
  Age: 60 Year
  Sex: Male
  Weight: 68 kg

DRUGS (15)
  1. THYMOGLOBULIN [Suspect]
     Indication: STEM CELL TRANSPLANT
     Dosage: 151.5 MG, QD, INTRAVENOUS
     Route: 042
     Dates: start: 20090130, end: 20090130
  2. FLUDARABINE PHOSPHATE [Concomitant]
  3. BUSULFAN (BUSULFAN) [Concomitant]
  4. MICAFUNGIN SODIUM (MICAFUNGIN SODIUM) [Concomitant]
  5. LINEZOLID [Concomitant]
  6. RIFAMPICIN [Concomitant]
  7. DEFERASIROX (DEFERASIROX) [Concomitant]
  8. CEFEPIME HYDROCHLORIDE [Concomitant]
  9. TACROLIMUS [Concomitant]
  10. MYCOPHENOLATE MOFETIL [Concomitant]
  11. PIPERACILLIN AND TAZOBACTAM [Concomitant]
  12. COLISTIN SULFATE (COLISTIN SULFATE) [Concomitant]
  13. CYCLOPHOSPHAMIDE [Concomitant]
  14. PREDNISOLONE ACETATE [Concomitant]
  15. METHYLPREDNISOLONE [Concomitant]

REACTIONS (7)
  - CEREBRAL HAEMORRHAGE [None]
  - CORD BLOOD TRANSPLANT THERAPY [None]
  - ENGRAFT FAILURE [None]
  - INFECTION IN AN IMMUNOCOMPROMISED HOST [None]
  - MULTIPLE-DRUG RESISTANCE [None]
  - PSEUDOMONAL SEPSIS [None]
  - SURGICAL PROCEDURE REPEATED [None]
